FAERS Safety Report 5976036-6 (Version None)
Quarter: 2008Q4

REPORT INFORMATION
  Report Type: 
  Country: None (occurrence: None)
  Receive Date: 20081202
  Receipt Date: 20081120
  Transmission Date: 20090506
  Serious: Yes (Hospitalization)
  Sender: FDA-Public Use
  Company Number: FI-ROCHE-598707

PATIENT
  Age: 17 Year
  Sex: Female

DRUGS (5)
  1. CELLCEPT [Suspect]
     Dosage: FREQUENCY REPORTED: TWICE
     Route: 065
  2. METHOTREXATE [Concomitant]
  3. PREDNISOLONE [Concomitant]
     Dosage: FREQUENCY: ONCE
  4. ASPIRIN [Concomitant]
  5. ACETAMINOPHEN [Concomitant]
     Dosage: DOSAGE REPORTED: AD 3G/D

REACTIONS (1)
  - SYSTEMIC LUPUS ERYTHEMATOSUS [None]
